FAERS Safety Report 21185131 (Version 1)
Quarter: 2022Q3

REPORT INFORMATION
  Report Type: Spontaneous
  Country: US (occurrence: US)
  Receive Date: 20220808
  Receipt Date: 20220808
  Transmission Date: 20221027
  Serious: No
  Sender: FDA-Public Use
  Company Number: US-BRISTOL-MYERS SQUIBB COMPANY-2022-080804

PATIENT
  Age: 68 Year
  Sex: Male

DRUGS (1)
  1. POMALYST [Suspect]
     Active Substance: POMALIDOMIDE
     Indication: Plasma cell myeloma
     Route: 048
     Dates: start: 20220706, end: 20220726

REACTIONS (4)
  - Blister [Unknown]
  - Pruritus [Unknown]
  - Rash [Unknown]
  - Skin disorder [Unknown]

NARRATIVE: CASE EVENT DATE: 20220726
